FAERS Safety Report 4909597-6 (Version None)
Quarter: 2006Q1

REPORT INFORMATION
  Report Type: 
  Country: None (occurrence: None)
  Receive Date: 20060213
  Receipt Date: 20051115
  Transmission Date: 20060701
  Serious: Yes (Life-Threatening, Hospitalization)
  Sender: FDA-Public Use
  Company Number: PHHO2005JP18037

PATIENT
  Age: 67 Year
  Sex: Male
  Weight: 56 kg

DRUGS (12)
  1. LOCHOL [Suspect]
     Indication: HYPERCHOLESTEROLAEMIA
     Dosage: 20 MG, QD
     Route: 048
  2. SLOW-K [Concomitant]
  3. NORMONAL [Concomitant]
  4. NORVASC [Concomitant]
  5. ASPIRIN [Suspect]
     Indication: PROPHYLAXIS
     Dosage: 100 MG, UNK
     Route: 048
  6. TAKEPRON [Concomitant]
  7. ZANTAC [Suspect]
     Indication: GASTRIC ULCER
     Dosage: 450 MG, UNK
     Route: 048
  8. GRIMAC [Suspect]
     Indication: GASTRIC ULCER
     Dosage: 2.5 MG, UNK
     Route: 048
  9. AMLODIN [Concomitant]
     Dosage: 1.25 MG, UNK
     Route: 048
  10. GLIMICRON [Suspect]
     Dosage: 15 MG, UNK
     Route: 048
  11. DIOVAN [Suspect]
     Indication: HYPERTENSION
     Dosage: 40 MG, QD
     Route: 048
     Dates: start: 20021125, end: 20040105
  12. DIOVAN [Suspect]
     Dosage: 80 MG, QD
     Route: 048
     Dates: start: 20040106

REACTIONS (2)
  - PROSTATE CANCER [None]
  - PROSTATIC OPERATION [None]
